FAERS Safety Report 19091347 (Version 4)
Quarter: 2024Q1

REPORT INFORMATION
  Report Type: Spontaneous
  Country: AT (occurrence: AT)
  Receive Date: 20210405
  Receipt Date: 20240209
  Transmission Date: 20240410
  Serious: Yes (Other)
  Sender: FDA-Public Use
  Company Number: AT-ROCHE-2789990

PATIENT
  Age: 61 Year
  Sex: Female
  Weight: 65 kg

DRUGS (88)
  1. XGEVA [Suspect]
     Active Substance: DENOSUMAB
     Indication: Metastases to bone
     Dosage: 120 MILLIGRAM, QMO
     Route: 058
     Dates: start: 20180628, end: 20230504
  2. XGEVA [Suspect]
     Active Substance: DENOSUMAB
     Dosage: 120 MILLIGRAM, QMO
     Route: 058
     Dates: start: 20230706
  3. HERCEPTIN [Suspect]
     Active Substance: TRASTUZUMAB
     Indication: HER2 positive breast cancer
     Dosage: 520 MILLIGRAM, Q3WK
     Route: 041
     Dates: start: 20180717, end: 20181217
  4. HERCEPTIN [Suspect]
     Active Substance: TRASTUZUMAB
     Dosage: 8 MILLIGRAM/KILOGRAM, Q3WK
     Route: 041
     Dates: start: 20180627, end: 20180627
  5. HERCEPTIN [Suspect]
     Active Substance: TRASTUZUMAB
     Dosage: 6 MILLIGRAM/KILOGRAM, Q3WK
     Route: 041
     Dates: start: 20201202, end: 20220422
  6. HERCEPTIN [Suspect]
     Active Substance: TRASTUZUMAB
     Dosage: 6 MILLIGRAM/KILOGRAM, Q3WK
     Route: 041
     Dates: start: 20190205, end: 20201111
  7. PERJETA [Suspect]
     Active Substance: PERTUZUMAB
     Indication: HER2 positive breast cancer
     Dosage: 840 MILLIGRAM, Q3WK
     Route: 042
     Dates: start: 20180627, end: 20180627
  8. PERJETA [Suspect]
     Active Substance: PERTUZUMAB
     Dosage: 420 MILLIGRAM, Q3WK
     Route: 042
     Dates: start: 20180717, end: 20181217
  9. PERJETA [Suspect]
     Active Substance: PERTUZUMAB
     Dosage: 420 MILLIGRAM, Q3WK
     Route: 042
     Dates: start: 20190205, end: 20201111
  10. PERJETA [Suspect]
     Active Substance: PERTUZUMAB
     Dosage: 420 MILLIGRAM, Q4WK
     Route: 042
     Dates: start: 20201202, end: 20220422
  11. LETROZOLE [Suspect]
     Active Substance: LETROZOLE
     Indication: HER2 positive breast cancer
     Dosage: 2.5 MILLIGRAM, QD
     Route: 048
     Dates: start: 20181130
  12. TAXOTERE [Suspect]
     Active Substance: DOCETAXEL
     Indication: HER2 positive breast cancer
     Dosage: 75 MILLIGRAMSQ. METER, Q3WK
     Route: 042
     Dates: start: 20180627, end: 20181105
  13. TAXOTERE [Suspect]
     Active Substance: DOCETAXEL
     Indication: Breast cancer
  14. ZOFRAN [Concomitant]
     Active Substance: ONDANSETRON HYDROCHLORIDE
     Indication: Sepsis
     Dosage: 8 MILLIGRAM
     Route: 048
     Dates: start: 20180629
  15. ZOFRAN [Concomitant]
     Active Substance: ONDANSETRON HYDROCHLORIDE
     Dosage: 8 MILLIGRAM
     Dates: start: 20180626, end: 20181107
  16. ESOMEPRAZOLE [Concomitant]
     Active Substance: ESOMEPRAZOLE
     Dosage: ONGOING = CHECKED
     Route: 048
     Dates: start: 20180719
  17. DIPHENHYDRAMINE HYDROCHLORIDE [Concomitant]
     Active Substance: DIPHENHYDRAMINE HYDROCHLORIDE
     Dosage: ONGOING = CHECKED
     Route: 042
     Dates: start: 20180626
  18. DIOSMIN\HESPERIDIN [Concomitant]
     Active Substance: DIOSMIN\HESPERIDIN
     Dosage: ONGOING = CHECKED
     Route: 048
     Dates: start: 20190509
  19. DEXAMETHASONE [Concomitant]
     Active Substance: DEXAMETHASONE
     Dosage: ONGOING = CHECKED
     Dates: start: 20180626
  20. DEXAMETHASONE [Concomitant]
     Active Substance: DEXAMETHASONE
     Dosage: 4 MILLIGRAM, BID (0.5 DAY)
     Route: 048
     Dates: start: 20180629, end: 20180629
  21. VOLTAREN [Concomitant]
     Active Substance: DICLOFENAC SODIUM
     Dosage: 100 MILLIGRAM
     Dates: start: 20180816
  22. CLINDAMYCIN [Concomitant]
     Active Substance: CLINDAMYCIN
     Dosage: ONGOING = CHECKED
     Route: 048
     Dates: start: 20190205
  23. DEXPANTHENOL [Concomitant]
     Active Substance: DEXPANTHENOL
     Dosage: UNK
     Route: 048
     Dates: start: 20180628, end: 20181107
  24. EMEND [Concomitant]
     Active Substance: APREPITANT
     Dosage: 80 MILLIGRAM, QD
     Dates: start: 20180719, end: 20181107
  25. FLUCLOXACILLIN [Concomitant]
     Active Substance: FLUCLOXACILLIN
     Dosage: 1 GRAM
     Route: 047
     Dates: start: 20190116, end: 20190122
  26. ESOMEPRAZOLE [Concomitant]
     Active Substance: ESOMEPRAZOLE
     Indication: Ileus paralytic
     Dosage: 40 MILLIGRAM, QD
     Route: 048
     Dates: start: 20180625, end: 20180719
  27. MIDAZOLAM HYDROCHLORIDE [Concomitant]
     Active Substance: MIDAZOLAM HYDROCHLORIDE
     Indication: Pneumonia
     Dosage: 5 MILLIGRAM
     Route: 042
     Dates: start: 20180626, end: 20180626
  28. LIPEGFILGRASTIM [Concomitant]
     Active Substance: LIPEGFILGRASTIM
     Dosage: 6 MILLIGRAM
     Route: 058
     Dates: start: 20180625, end: 20181107
  29. CEFUROXIME [Concomitant]
     Active Substance: CEFUROXIME
     Dosage: 500 MILLIGRAM
     Route: 048
     Dates: start: 20180808, end: 20180818
  30. POLYETHYLENE GLYCOL 4000 [Concomitant]
     Active Substance: POLYETHYLENE GLYCOL 4000
     Indication: Constipation
     Dosage: UNK
     Route: 048
     Dates: start: 20180628, end: 20181107
  31. ACETAMINOPHEN [Concomitant]
     Active Substance: ACETAMINOPHEN
     Dosage: 500 MILLIGRAM
     Route: 048
     Dates: start: 20180628, end: 20181107
  32. CHOLECALCIFEROL [Concomitant]
     Active Substance: CHOLECALCIFEROL
     Dosage: 20000 INTERNATIONAL UNIT
     Route: 048
     Dates: start: 20180628, end: 20180628
  33. CHOLECALCIFEROL [Concomitant]
     Active Substance: CHOLECALCIFEROL
     Dosage: 20000 INTERNATIONAL UNIT (0.5 WEEK)
     Route: 048
     Dates: start: 20180629, end: 20190319
  34. BISOPROLOL FUMARATE [Concomitant]
     Active Substance: BISOPROLOL FUMARATE
     Dosage: 2.5 MILLIGRAM, QD
     Route: 048
     Dates: start: 20200817
  35. PROPOFOL [Concomitant]
     Active Substance: PROPOFOL
     Indication: HER2 positive breast cancer
     Dosage: 50 MILLIGRAM
     Route: 042
     Dates: start: 20180626, end: 20180626
  36. NYSTATIN [Concomitant]
     Active Substance: NYSTATIN
     Dosage: UNK
     Route: 062
     Dates: start: 20180907, end: 20181020
  37. GENTAMICIN SULFATE [Concomitant]
     Active Substance: GENTAMICIN SULFATE
     Indication: Volvulus
  38. INDERAL [Concomitant]
     Active Substance: PROPRANOLOL HYDROCHLORIDE
     Indication: Sepsis
  39. ETILEFRINE HYDROCHLORIDE [Concomitant]
     Active Substance: ETILEFRINE HYDROCHLORIDE
     Indication: Sepsis
  40. DIHYDRALAZINE [Concomitant]
     Active Substance: DIHYDRALAZINE
     Indication: Ileus paralytic
  41. BERODUALIN [Concomitant]
     Indication: Volvulus
  42. MAGNESIUM CARBONATE\MAGNESIUM OXIDE [Concomitant]
     Active Substance: MAGNESIUM CARBONATE\MAGNESIUM OXIDE
     Indication: Sepsis
  43. MEROPENEM [Concomitant]
     Active Substance: MEROPENEM
     Indication: Sepsis
  44. OXAZEPAM [Concomitant]
     Active Substance: OXAZEPAM
     Indication: Sepsis
  45. HYPOTRIT [Concomitant]
     Indication: Sepsis
  46. BRICANYL [Concomitant]
     Active Substance: TERBUTALINE SULFATE
     Indication: Volvulus
  47. POTASSIUM CHLORIDE [Concomitant]
     Active Substance: POTASSIUM CHLORIDE
     Indication: Ileus paralytic
  48. CLONIDINE [Concomitant]
     Active Substance: CLONIDINE
     Indication: Volvulus
  49. FRAGMIN [Concomitant]
     Active Substance: DALTEPARIN SODIUM
     Indication: Sepsis
  50. MELATONIN [Concomitant]
     Active Substance: MELATONIN
     Indication: Insomnia
  51. PANTOPRAZOLE SODIUM [Concomitant]
     Active Substance: PANTOPRAZOLE SODIUM
     Indication: Sepsis
  52. MORPHINE [Concomitant]
     Active Substance: MORPHINE
     Indication: Ileus paralytic
  53. NYSTATIN [Concomitant]
     Active Substance: NYSTATIN
     Dosage: 20
     Dates: start: 20180907, end: 20181020
  54. ESOMEPRAZOLE [Concomitant]
     Active Substance: ESOMEPRAZOLE
     Dosage: 40 MILLIGRAM, QD
     Dates: start: 20180625, end: 20180719
  55. Ketanest [Concomitant]
     Indication: Sepsis
  56. NALOXEGOL OXALATE [Concomitant]
     Active Substance: NALOXEGOL OXALATE
     Indication: Volvulus
  57. NEOSTIGMINE [Concomitant]
     Active Substance: NEOSTIGMINE
     Indication: Ileus paralytic
  58. XIPAMIDE [Concomitant]
     Active Substance: XIPAMIDE
     Indication: Ileus paralytic
  59. PROPOFOL [Concomitant]
     Active Substance: PROPOFOL
     Indication: Ileus paralytic
     Dosage: 50 MILLIGRAM
     Dates: start: 20180626, end: 20180626
  60. VOLTAREN [Concomitant]
     Active Substance: DICLOFENAC SODIUM
     Dosage: ONGOING = CHECKED
     Dates: start: 20180816
  61. PULMICORT TURBUHALER [Concomitant]
     Active Substance: BUDESONIDE
     Indication: Volvulus
  62. Novalgin [Concomitant]
     Indication: Sepsis
  63. LASIX [Concomitant]
     Active Substance: FUROSEMIDE
     Indication: Sepsis
  64. Dormicum [Concomitant]
     Indication: Pneumonia
  65. CEFEPIME HYDROCHLORIDE [Concomitant]
     Active Substance: CEFEPIME HYDROCHLORIDE
     Indication: Sepsis
  66. ELOZELL [Concomitant]
     Indication: Sepsis
  67. PERFALGAN [Concomitant]
     Active Substance: ACETAMINOPHEN
     Indication: Sepsis
  68. Acemin [Concomitant]
     Indication: Sepsis
  69. ERYTHROMYCIN [Concomitant]
     Active Substance: ERYTHROMYCIN
     Indication: Sepsis
  70. LINEZOLID [Concomitant]
     Active Substance: LINEZOLID
     Indication: Sepsis
  71. FLUCONAZOLE [Concomitant]
     Active Substance: FLUCONAZOLE
     Indication: Sepsis
  72. SERTRALINE HYDROCHLORIDE [Concomitant]
     Active Substance: SERTRALINE HYDROCHLORIDE
     Indication: Volvulus
  73. SUFENTANIL [Concomitant]
     Active Substance: SUFENTANIL
     Indication: Pneumonia
  74. MELPERONE HYDROCHLORIDE [Concomitant]
     Active Substance: MELPERONE HYDROCHLORIDE
     Indication: Ileus paralytic
  75. ALBUMIN HUMAN [Concomitant]
     Active Substance: ALBUMIN HUMAN
     Indication: Sepsis
  76. Temesta [Concomitant]
     Indication: Sepsis
  77. DIPHENHYDRAMINE HYDROCHLORIDE [Concomitant]
     Active Substance: DIPHENHYDRAMINE HYDROCHLORIDE
     Indication: Ileus paralytic
     Dosage: 30 MILLIGRAM
     Dates: start: 20180626
  78. TRAZODONE HYDROCHLORIDE [Concomitant]
     Active Substance: TRAZODONE HYDROCHLORIDE
     Indication: Sepsis
  79. METASOL [Concomitant]
     Active Substance: BENZOPHENONE\HYDROQUINONE
     Indication: Ileus paralytic
  80. FUROSEMIDE\SPIRONOLACTONE [Concomitant]
     Active Substance: FUROSEMIDE\SPIRONOLACTONE
     Indication: Sepsis
  81. POLYETHYLENE GLYCOL 3350\POTASSIUM CHLORIDE\SODIUM BICARBONATE\SODIUM [Concomitant]
     Active Substance: POLYETHYLENE GLYCOL 3350\POTASSIUM CHLORIDE\SODIUM BICARBONATE\SODIUM CHLORIDE
     Indication: Volvulus
  82. NOREPINEPHRINE HYDROCHLORIDE, (+/-)- [Concomitant]
     Active Substance: NOREPINEPHRINE HYDROCHLORIDE, (+/-)-
     Indication: Sepsis
  83. FENTANYL [Concomitant]
     Active Substance: FENTANYL\FENTANYL CITRATE
     Indication: Sepsis
  84. SEROQUEL [Concomitant]
     Active Substance: QUETIAPINE FUMARATE
     Indication: Sepsis
  85. CLONIDINE [Concomitant]
     Active Substance: CLONIDINE
     Indication: Ileus paralytic
  86. GASTROMIRO [Concomitant]
     Indication: Volvulus
  87. Paspertin [Concomitant]
     Indication: Volvulus
  88. ASCORBIC ACID\CALCIUM PHOSPHATE\CHOLECALCIFEROL\CITRIC ACID MONOHYDRAT [Concomitant]
     Active Substance: ASCORBIC ACID\CALCIUM PHOSPHATE\CHOLECALCIFEROL\CITRIC ACID MONOHYDRATE
     Indication: Sepsis

REACTIONS (1)
  - Polyneuropathy [Not Recovered/Not Resolved]

NARRATIVE: CASE EVENT DATE: 20200615
